FAERS Safety Report 6819260-2 (Version None)
Quarter: 2010Q3

REPORT INFORMATION
  Report Type: 
  Country: None (occurrence: None)
  Receive Date: 20100707
  Receipt Date: 20100302
  Transmission Date: 20110219
  Serious: Yes (Other)
  Sender: FDA-Public Use
  Company Number: US-ASTRAZENECA-2010SE31131

PATIENT
  Age: 15146 Day
  Sex: Male

DRUGS (9)
  1. SEROQUEL [Suspect]
     Dosage: 100 TO 200 MG
     Route: 048
     Dates: start: 20050314
  2. GABAPENTIN [Concomitant]
     Route: 048
     Dates: start: 20050310
  3. EFFEXOR XR [Concomitant]
     Route: 048
     Dates: start: 20050113
  4. KADIAN [Concomitant]
     Dosage: 100 MG, TAKE 3 CAPSULES PO QD
     Route: 048
     Dates: start: 20050407
  5. VALIUM [Concomitant]
     Dosage: 30 MG DAILY
     Route: 048
     Dates: start: 20050314
  6. AMBIEN CR [Concomitant]
     Route: 048
     Dates: start: 20090205
  7. LISINOPRIL [Concomitant]
     Route: 048
     Dates: start: 20090918
  8. LEVITRA [Concomitant]
     Dosage: 10 MG PO PRN
     Route: 048
     Dates: start: 20090205
  9. AMITRIPTYLINE HCL [Concomitant]
     Route: 048
     Dates: start: 20050113

REACTIONS (12)
  - ADJUSTMENT DISORDER WITH ANXIETY [None]
  - BACK DISORDER [None]
  - DEEP VEIN THROMBOSIS [None]
  - DIABETIC NEPHROPATHY [None]
  - DRUG DEPENDENCE [None]
  - ERECTILE DYSFUNCTION [None]
  - INSOMNIA [None]
  - JOINT DISLOCATION [None]
  - MAJOR DEPRESSION [None]
  - OEDEMA [None]
  - OSTEOPOROSIS [None]
  - TYPE 2 DIABETES MELLITUS [None]
